FAERS Safety Report 18844876 (Version 1)
Quarter: 2021Q1

REPORT INFORMATION
  Report Type: Spontaneous
  Country: US (occurrence: US)
  Receive Date: 20210203
  Receipt Date: 20210203
  Transmission Date: 20210419
  Serious: Yes (Other)
  Sender: FDA-Public Use
  Company Number: None

PATIENT
  Age: 68 Year
  Sex: Male
  Weight: 38.06 kg

DRUGS (1)
  1. KETAMINE [Suspect]
     Active Substance: KETAMINE
     Indication: PAIN
     Dosage: ?          OTHER ROUTE:IV?
     Route: 042
     Dates: start: 20201026, end: 20201026

REACTIONS (5)
  - Dystonia [None]
  - Sinus tachycardia [None]
  - Blood creatine phosphokinase increased [None]
  - Muscle rigidity [None]
  - Respiratory rate increased [None]

NARRATIVE: CASE EVENT DATE: 20201026
